FAERS Safety Report 14510085 (Version 1)
Quarter: 2018Q1

REPORT INFORMATION
  Report Type: Spontaneous
  Country: US (occurrence: US)
  Receive Date: 20180209
  Receipt Date: 20180209
  Transmission Date: 20180509
  Serious: No
  Sender: FDA-Public Use
  Company Number: US-CELGENEUS-USA-20180202438

PATIENT
  Sex: Male

DRUGS (1)
  1. OTEZLA [Suspect]
     Active Substance: APREMILAST
     Indication: PSORIATIC ARTHROPATHY
     Dosage: 28 DAY STARTER PACK
     Route: 048
     Dates: start: 20171227

REACTIONS (2)
  - Depression [Not Recovered/Not Resolved]
  - Nausea [Not Recovered/Not Resolved]
